FAERS Safety Report 8533880-9 (Version None)
Quarter: 2012Q3

REPORT INFORMATION
  Report Type: 
  Country: None (occurrence: None)
  Receive Date: 20120711
  Receipt Date: 20110406
  Transmission Date: 20120928
  Serious: No
  Sender: FDA-Public Use
  Company Number: A11-016

PATIENT

DRUGS (3)
  1. PECAN POLLEN [Suspect]
  2. MESQUITE POLLEN [Suspect]
     Indication: RHINITIS ALLERGIC
  3. RUSSIAN THISTLE [Suspect]

REACTIONS (1)
  - SKIN REACTION [None]
